FAERS Safety Report 21267449 (Version 2)
Quarter: 2022Q3

REPORT INFORMATION
  Report Type: Other
  Country: IN (occurrence: None)
  Receive Date: 20220829
  Receipt Date: 20220902
  Transmission Date: 20221026
  Serious: Yes (Hospitalization)
  Sender: FDA-Public Use
  Company Number: IN-ROCHE-3169437

PATIENT
  Age: 20 Year
  Sex: Male

DRUGS (1)
  1. ACTEMRA [Suspect]
     Active Substance: TOCILIZUMAB
     Indication: Rheumatoid arthritis
     Dosage: THE PATIENT DOSAGE WAS MONTHLY BUT NOW DOCTOR DECIDED TO GIVE THIS MEDICINE IN A WEEK AND PRESCRIBED
     Route: 065
     Dates: start: 20201116

REACTIONS (1)
  - Pain [Not Recovered/Not Resolved]

NARRATIVE: CASE EVENT DATE: 20220820
